FAERS Safety Report 14366632 (Version 1)
Quarter: 2018Q1

REPORT INFORMATION
  Report Type: Spontaneous
  Country: US (occurrence: US)
  Receive Date: 20180108
  Receipt Date: 20180108
  Transmission Date: 20180509
  Serious: Yes (Hospitalization)
  Sender: FDA-Public Use
  Company Number: None

PATIENT
  Sex: Female

DRUGS (10)
  1. INLYTA [Suspect]
     Active Substance: AXITINIB
     Indication: METASTASIS
     Route: 048
     Dates: start: 20171221
  2. RESTASIS [Concomitant]
     Active Substance: CYCLOSPORINE
  3. METOPROLOL. [Concomitant]
     Active Substance: METOPROLOL
  4. INLYTA [Suspect]
     Active Substance: AXITINIB
     Indication: RENAL CANCER
     Route: 048
     Dates: start: 20171221
  5. LASIX [Concomitant]
     Active Substance: FUROSEMIDE
  6. XARELTO [Concomitant]
     Active Substance: RIVAROXABAN
  7. TYLENOL [Concomitant]
     Active Substance: ACETAMINOPHEN
  8. ASCORBIC ACID. [Concomitant]
     Active Substance: ASCORBIC ACID
  9. LEVOTHYROXINE. [Concomitant]
     Active Substance: LEVOTHYROXINE
  10. LOPERAMIDE [Concomitant]
     Active Substance: LOPERAMIDE

REACTIONS (2)
  - Blindness [None]
  - Cerebral haemorrhage [None]
